FAERS Safety Report 10435701 (Version 2)
Quarter: 2014Q3

REPORT INFORMATION
  Report Type: Spontaneous
  Country: US (occurrence: US)
  Receive Date: 20140908
  Receipt Date: 20140916
  Transmission Date: 20150326
  Serious: Yes (Hospitalization, Other)
  Sender: FDA-Public Use
  Company Number: PHEH2014US017315

PATIENT
  Sex: Female

DRUGS (5)
  1. FORTEO [Suspect]
     Active Substance: TERIPARATIDE
     Indication: OSTEOPOROSIS
     Dosage: UNK UKN, UNK
  2. CARBAMAZEPINE. [Suspect]
     Active Substance: CARBAMAZEPINE
     Indication: CONVULSION
     Dosage: UNK UKN, UNK
     Dates: start: 1980
  3. KEPPRA [Suspect]
     Active Substance: LEVETIRACETAM
     Indication: CONVULSION
     Dosage: UNK UKN, UNK
     Dates: start: 2010
  4. BONIVA [Suspect]
     Active Substance: IBANDRONATE SODIUM
     Dosage: UNK UKN, UNK
  5. EXCEDRIN [Suspect]
     Active Substance: ACETAMINOPHEN\ASPIRIN\CAFFEINE
     Dosage: UNK UKN, UNK

REACTIONS (6)
  - Headache [Unknown]
  - Myocardial infarction [Unknown]
  - Disease progression [Unknown]
  - Osteoporosis [Unknown]
  - Uterine cancer [Unknown]
  - Cerebral haematoma [Unknown]
